FAERS Safety Report 14924736 (Version 1)
Quarter: 2018Q2

REPORT INFORMATION
  Report Type: Spontaneous
  Country: US (occurrence: US)
  Receive Date: 20180504
  Receipt Date: 20180504
  Transmission Date: 20180711
  Serious: No
  Sender: FDA-Public Use
  Company Number: None

PATIENT
  Age: 40 Year
  Sex: Male
  Weight: 81 kg

DRUGS (1)
  1. NAFTIN [Suspect]
     Active Substance: NAFTIFINE HYDROCHLORIDE
     Indication: TINEA PEDIS
     Dates: start: 20180501, end: 20180504

REACTIONS (3)
  - Pruritus [None]
  - Burning feet syndrome [None]
  - Blister [None]

NARRATIVE: CASE EVENT DATE: 20180504
